FAERS Safety Report 18458592 (Version 2)
Quarter: 2020Q4

REPORT INFORMATION
  Report Type: Spontaneous
  Country: BR (occurrence: BR)
  Receive Date: 20201103
  Receipt Date: 20201114
  Transmission Date: 20210114
  Serious: Yes (Hospitalization, Other)
  Sender: FDA-Public Use
  Company Number: NVSC2020BR293718

PATIENT
  Age: 96 Year
  Sex: Female

DRUGS (2)
  1. DIOVAN [Suspect]
     Active Substance: VALSARTAN
     Dosage: 160 UNK
     Route: 065
  2. DIOVAN [Suspect]
     Active Substance: VALSARTAN
     Indication: PRODUCT USED FOR UNKNOWN INDICATION
     Dosage: 160 MG, 3 MONTHS AGO, 28 COATED TABLETS
     Route: 065

REACTIONS (5)
  - Seizure [Recovered/Resolved]
  - Bacterial infection [Unknown]
  - Seizure [Unknown]
  - Wrong technique in product usage process [Recovered/Resolved]
  - Pneumonia [Unknown]

NARRATIVE: CASE EVENT DATE: 20201016
